FAERS Safety Report 10948579 (Version 1)
Quarter: 2015Q1

REPORT INFORMATION
  Report Type: Spontaneous
  Country: US (occurrence: US)
  Receive Date: 20150324
  Receipt Date: 20150324
  Transmission Date: 20150721
  Serious: Yes (Other)
  Sender: FDA-Public Use
  Company Number: 2015SP000857

PATIENT
  Age: 62 Year
  Sex: Female

DRUGS (6)
  1. VIVANT [Concomitant]
     Route: 048
  2. LATUDA [Suspect]
     Active Substance: LURASIDONE HYDROCHLORIDE
     Indication: BIPOLAR DISORDER
     Route: 048
  3. LAMICTAL [Concomitant]
     Active Substance: LAMOTRIGINE
     Route: 048
  4. LATUDA [Suspect]
     Active Substance: LURASIDONE HYDROCHLORIDE
     Indication: BIPOLAR DISORDER
     Route: 048
     Dates: start: 201503
  5. LATUDA [Suspect]
     Active Substance: LURASIDONE HYDROCHLORIDE
     Indication: BIPOLAR DISORDER
     Route: 048
     Dates: start: 20140313
  6. LATUDA [Suspect]
     Active Substance: LURASIDONE HYDROCHLORIDE
     Indication: BIPOLAR DISORDER
     Route: 048
     Dates: end: 201503

REACTIONS (5)
  - Bruxism [Recovering/Resolving]
  - Hepatic enzyme increased [Not Recovered/Not Resolved]
  - Platelet count increased [Not Recovered/Not Resolved]
  - Akathisia [Recovering/Resolving]
  - Off label use [None]
